FAERS Safety Report 5851936-6 (Version None)
Quarter: 2008Q3

REPORT INFORMATION
  Report Type: 
  Country: None (occurrence: None)
  Receive Date: 20080819
  Receipt Date: 20080804
  Transmission Date: 20090109
  Serious: Yes (Other)
  Sender: FDA-Public Use
  Company Number: DSU-2008-01173

PATIENT
  Sex: Male

DRUGS (2)
  1. BENICAR [Suspect]
     Indication: HYPERTENSION
     Dosage: PER ORAL
     Route: 048
  2. MAXZIDE (HYDROCHLOROTHIAZIDE, TRIAMTERENE) (HYDROCHLOROTHIAZIDE, TRIAM [Concomitant]

REACTIONS (2)
  - DEPRESSION [None]
  - HYPOTENSION [None]
